FAERS Safety Report 24206445 (Version 2)
Quarter: 2024Q3

REPORT INFORMATION
  Report Type: Spontaneous
  Country: AU (occurrence: AU)
  Receive Date: 20240813
  Receipt Date: 20240821
  Transmission Date: 20241017
  Serious: Yes (Hospitalization)
  Sender: BIOGEN
  Company Number: AU-BIOGEN-2024BI01277554

PATIENT
  Age: 39 Year
  Sex: Female

DRUGS (2)
  1. TYSABRI [Suspect]
     Active Substance: NATALIZUMAB
     Indication: Relapsing-remitting multiple sclerosis
     Route: 050
     Dates: start: 20080731
  2. TYSABRI [Suspect]
     Active Substance: NATALIZUMAB
     Route: 050
     Dates: start: 201905

REACTIONS (16)
  - Musculoskeletal stiffness [Unknown]
  - Photophobia [Unknown]
  - Oral herpes [Unknown]
  - Posterior reversible encephalopathy syndrome [Unknown]
  - Diplopia [Unknown]
  - Brain fog [Unknown]
  - Asthenia [Unknown]
  - Sensory loss [Unknown]
  - Reversible cerebral vasoconstriction syndrome [Unknown]
  - Central nervous system vasculitis [Unknown]
  - Vasospasm [Unknown]
  - Atypical migraine [Unknown]
  - Lethargy [Unknown]
  - Headache [Unknown]
  - Nausea [Unknown]
  - Varicella zoster virus infection [Unknown]
